FAERS Safety Report 15784015 (Version 1)
Quarter: 2019Q1

REPORT INFORMATION
  Report Type: Report from Study
  Country: None (occurrence: US)
  Receive Date: 20190103
  Receipt Date: 20190103
  Transmission Date: 20190417
  Serious: Yes (Other)
  Sender: FDA-Public Use
  Company Number: US-ABBVIE-18S-163-2606101-00

PATIENT
  Age: 64 Year
  Sex: Female

DRUGS (1)
  1. CREON [Suspect]
     Active Substance: PANCRELIPASE AMYLASE\PANCRELIPASE LIPASE\PANCRELIPASE PROTEASE
     Indication: PRODUCT USED FOR UNKNOWN INDICATION
     Route: 048

REACTIONS (16)
  - Klebsiella infection [Unknown]
  - Limb operation [Unknown]
  - Haemorrhoids [Unknown]
  - Escherichia infection [Unknown]
  - Parathyroidectomy [Unknown]
  - Liver abscess [Unknown]
  - Precancerous skin lesion [Unknown]
  - Ligament operation [Unknown]
  - Arthrofibrosis [Unknown]
  - Gastrointestinal stromal tumour [Unknown]
  - Parathyroid tumour benign [Unknown]
  - Cyst [Unknown]
  - Haemorrhoids [Unknown]
  - Cataract [Unknown]
  - Precancerous skin lesion [Unknown]
  - Meniscus operation [Unknown]

NARRATIVE: CASE EVENT DATE: 200905
